FAERS Safety Report 8602560-3 (Version None)
Quarter: 2012Q3

REPORT INFORMATION
  Report Type: 
  Country: None (occurrence: None)
  Receive Date: 20120817
  Receipt Date: 20120804
  Transmission Date: 20120928
  Serious: Yes (Other)
  Sender: FDA-Public Use
  Company Number: IT-INCYTE CORPORATION-2012IN001490

PATIENT
  Sex: Female
  Weight: 60 kg

DRUGS (5)
  1. ALLOPURINOL [Concomitant]
     Dosage: UNK
     Dates: start: 20060906, end: 20120630
  2. INC424 [Suspect]
     Dosage: 5 MG, BID
     Route: 065
     Dates: start: 20120410, end: 20120507
  3. INC424 [Suspect]
     Dosage: 10 MG, BID
     Route: 065
     Dates: start: 20120508, end: 20120619
  4. INC424 [Suspect]
     Indication: MYELOFIBROSIS
     Dosage: 15 MG, BID
     Route: 065
     Dates: start: 20120215, end: 20120316
  5. INC424 [Suspect]
     Dosage: 5 MG, BID
     Route: 065
     Dates: start: 20120620

REACTIONS (1)
  - HYPERURICAEMIA [None]
